FAERS Safety Report 16043170 (Version 1)
Quarter: 2019Q1

REPORT INFORMATION
  Report Type: Spontaneous
  Country: NL (occurrence: NL)
  Receive Date: 20190306
  Receipt Date: 20190306
  Transmission Date: 20190418
  Serious: Yes (Other)
  Sender: FDA-Public Use
  Company Number: NL-MYLANLABS-2019M1020887

PATIENT
  Age: 61 Year
  Sex: Male
  Weight: 77 kg

DRUGS (6)
  1. SYMBICORT [Concomitant]
     Active Substance: BUDESONIDE\FORMOTEROL FUMARATE DIHYDRATE
     Dosage: 2 DD 1
  2. NORTRILEN [Concomitant]
     Active Substance: NORTRIPTYLINE
     Dosage: 1DD 2
  3. SALBUTAMOL [Concomitant]
     Active Substance: ALBUTEROL
     Dosage: 6 DD 2
  4. SPIRIVA [Concomitant]
     Active Substance: TIOTROPIUM BROMIDE MONOHYDRATE
     Dosage: 1 DD 1
  5. ENALAPRIL [Suspect]
     Active Substance: ENALAPRIL
     Indication: HYPERTENSION
     Dosage: 1D1T
     Route: 048
     Dates: start: 20180409, end: 20180908
  6. HYDROCHLOORTHIAZIDE [Concomitant]
     Active Substance: HYDROCHLOROTHIAZIDE
     Dosage: 1 DD 1

REACTIONS (5)
  - Diverticulitis [Recovered/Resolved]
  - Dizziness [Recovered/Resolved]
  - Abnormal faeces [Recovered/Resolved]
  - Dyschezia [Recovered/Resolved]
  - Abdominal pain [Recovered/Resolved]

NARRATIVE: CASE EVENT DATE: 20180411
